FAERS Safety Report 10597022 (Version 7)
Quarter: 2018Q2

REPORT INFORMATION
  Report Type: Spontaneous
  Country: CA (occurrence: CA)
  Receive Date: 20141121
  Receipt Date: 20180618
  Transmission Date: 20180711
  Serious: Yes (Hospitalization, Other)
  Sender: FDA-Public Use
  Company Number: CA-ROCHE-1493190

PATIENT
  Age: 73 Year
  Sex: Male

DRUGS (5)
  1. XOLAIR [Suspect]
     Active Substance: OMALIZUMAB
     Dosage: UNK
     Route: 058
     Dates: start: 20161130
  2. XOLAIR [Suspect]
     Active Substance: OMALIZUMAB
     Indication: ASTHMA
     Dosage: 150 MG, EVERY 4 WEEKS
     Route: 058
     Dates: start: 20070517
  3. XOLAIR [Suspect]
     Active Substance: OMALIZUMAB
     Dosage: UNK
     Route: 058
     Dates: start: 20161102
  4. XOLAIR [Suspect]
     Active Substance: OMALIZUMAB
     Dosage: UNK
     Route: 058
     Dates: start: 20170125, end: 20180517
  5. XOLAIR [Suspect]
     Active Substance: OMALIZUMAB
     Dosage: UNK
     Route: 058
     Dates: start: 20161228

REACTIONS (11)
  - Fall [Unknown]
  - Respiratory tract congestion [Unknown]
  - Arthralgia [Unknown]
  - Blood pressure systolic increased [Recovering/Resolving]
  - Torticollis [Unknown]
  - Bronchitis [Unknown]
  - Rhinorrhoea [Unknown]
  - Asthma [Unknown]
  - Eosinophilic pneumonia [Unknown]
  - Rib fracture [Unknown]
  - Cough [Unknown]

NARRATIVE: CASE EVENT DATE: 201406
